FAERS Safety Report 6119741-3 (Version None)
Quarter: 2009Q1

REPORT INFORMATION
  Report Type: 
  Country: None (occurrence: None)
  Receive Date: 20090316
  Receipt Date: 20090309
  Transmission Date: 20090719
  Serious: Yes (Other)
  Sender: FDA-Public Use
  Company Number: CH-MERCK-0903CHE00006

PATIENT
  Age: 88 Year
  Sex: Female
  Weight: 58 kg

DRUGS (23)
  1. NOROXIN [Suspect]
     Route: 048
     Dates: start: 20081024, end: 20081029
  2. SINTROM [Suspect]
     Indication: ATRIAL FIBRILLATION
     Route: 048
     Dates: end: 20081217
  3. NEXIUM [Suspect]
     Indication: ABDOMINAL PAIN UPPER
     Route: 048
     Dates: start: 20081129, end: 20081212
  4. CO-AMOXI [Concomitant]
     Route: 048
     Dates: start: 20081201, end: 20081210
  5. BRUFEN [Concomitant]
     Route: 048
     Dates: start: 20081120, end: 20081121
  6. CONCOR [Concomitant]
     Route: 048
     Dates: end: 20081128
  7. EUTHYROX [Concomitant]
     Route: 048
  8. TRITTICO [Concomitant]
     Route: 048
     Dates: end: 20081216
  9. MAGNESIUM (UNSPECIFIED) [Concomitant]
     Route: 048
  10. FUROSEMIDE [Concomitant]
     Route: 048
     Dates: end: 20081024
  11. OMED [Concomitant]
     Route: 048
     Dates: end: 20081024
  12. EBIXA [Concomitant]
     Route: 048
     Dates: end: 20081024
  13. NULYTELY [Concomitant]
     Route: 048
     Dates: start: 20081025
  14. LAXOBERON [Concomitant]
     Route: 048
     Dates: start: 20081024
  15. FOLVITE [Concomitant]
     Route: 048
     Dates: start: 20081028, end: 20081128
  16. CHOLECALCIFEROL [Concomitant]
     Route: 048
     Dates: start: 20081028, end: 20081117
  17. CALCIMAGON [Concomitant]
     Route: 048
     Dates: start: 20081117, end: 20081209
  18. MOTILIUM [Concomitant]
     Route: 048
  19. CITALOPRAM [Concomitant]
     Route: 048
     Dates: start: 20081209
  20. PREDNISONE [Concomitant]
     Route: 048
     Dates: start: 20081217, end: 20081219
  21. DIGOXIN [Concomitant]
     Route: 048
     Dates: start: 20081201
  22. VITARUBIN [Concomitant]
     Route: 048
     Dates: start: 20081028
  23. DAFALGAN [Concomitant]
     Route: 048
     Dates: start: 20081120

REACTIONS (1)
  - INTERNATIONAL NORMALISED RATIO INCREASED [None]
